APPROVED DRUG PRODUCT: CEFEPIME HYDROCHLORIDE
Active Ingredient: CEFEPIME HYDROCHLORIDE
Strength: EQ 2GM BASE/VIAL
Dosage Form/Route: INJECTABLE;INJECTION
Application: A090291 | Product #003
Applicant: CHARTWELL RX SCIENCES LLC
Approved: Dec 21, 2010 | RLD: No | RS: No | Type: DISCN